FAERS Safety Report 20300307 (Version 2)
Quarter: 2022Q2

REPORT INFORMATION
  Report Type: Report from Study
  Country: FR (occurrence: FR)
  Receive Date: 20220105
  Receipt Date: 20220623
  Transmission Date: 20220721
  Serious: Yes (Other)
  Sender: FDA-Public Use
  Company Number: FR-TAKEDA-2022TUS000465

PATIENT
  Age: 56 Year
  Sex: Female

DRUGS (8)
  1. TEDUGLUTIDE [Suspect]
     Active Substance: TEDUGLUTIDE
     Indication: Short-bowel syndrome
     Dosage: 3.05 MILLIGRAM, 1/WEEK
     Route: 042
     Dates: start: 20180517
  2. TEDUGLUTIDE [Suspect]
     Active Substance: TEDUGLUTIDE
     Indication: Short-bowel syndrome
     Dosage: 3.05 MILLIGRAM, 1/WEEK
     Route: 042
     Dates: start: 20180517
  3. TEDUGLUTIDE [Suspect]
     Active Substance: TEDUGLUTIDE
     Indication: Short-bowel syndrome
     Dosage: 3.05 MILLIGRAM, 1/WEEK
     Route: 042
     Dates: start: 20180517
  4. TEDUGLUTIDE [Suspect]
     Active Substance: TEDUGLUTIDE
     Indication: Short-bowel syndrome
     Dosage: 3.05 MILLIGRAM, 1/WEEK
     Route: 042
     Dates: start: 20180517
  5. ANAFRANIL [Concomitant]
     Active Substance: CLOMIPRAMINE HYDROCHLORIDE
     Indication: Antidepressant therapy
     Dosage: 10 MILLIGRAM
     Route: 065
     Dates: start: 201907
  6. VANCOMYCIN [Concomitant]
     Active Substance: VANCOMYCIN
     Indication: Staphylococcal infection
     Dosage: 500 MILLIGRAM
     Route: 065
     Dates: start: 20190612, end: 201906
  7. ACLASTA [Concomitant]
     Active Substance: ZOLEDRONIC ACID
     Dosage: 5 MILLIGRAM
     Route: 042
     Dates: start: 201906
  8. EMLA [Concomitant]
     Active Substance: LIDOCAINE\PRILOCAINE
     Indication: Induction of anaesthesia
     Dosage: 1 INTERNATIONAL UNIT, 1/WEEK
     Route: 062
     Dates: start: 20170227

REACTIONS (1)
  - Hepatic cytolysis [Not Recovered/Not Resolved]

NARRATIVE: CASE EVENT DATE: 20200101
